FAERS Safety Report 8944608 (Version 3)
Quarter: 2013Q1

REPORT INFORMATION
  Report Type: Spontaneous
  Country: US (occurrence: US)
  Receive Date: 20121204
  Receipt Date: 20130311
  Transmission Date: 20140127
  Serious: Yes (Hospitalization)
  Sender: FDA-Public Use
  Company Number: US-AMGEN-USASP2012061302

PATIENT
  Age: 38 Year
  Sex: Female
  Weight: 107 kg

DRUGS (5)
  1. ENBREL [Suspect]
     Indication: PSORIASIS
     Dosage: 50 MG, 2 TIMES/WK
     Dates: start: 20120816, end: 20120926
  2. FLUOCINONIDE [Concomitant]
     Dosage: UNK
  3. DERMA SMOOTH [Concomitant]
     Dosage: UNK
  4. CLOBETASOL [Concomitant]
     Dosage: UNK
  5. ELIDEL [Concomitant]
     Dosage: 1 %, BID

REACTIONS (1)
  - Erysipelas [Recovered/Resolved]
